FAERS Safety Report 22889780 (Version 10)
Quarter: 2023Q4

REPORT INFORMATION
  Report Type: Spontaneous
  Country: US (occurrence: US)
  Receive Date: 20230831
  Receipt Date: 20231114
  Transmission Date: 20240110
  Serious: Yes (Other)
  Sender: FDA-Public Use
  Company Number: US-PFIZER INC-202300284535

PATIENT
  Age: 92 Year
  Sex: Female
  Weight: 54.43 kg

DRUGS (3)
  1. PREMARIN [Suspect]
     Active Substance: ESTROGENS, CONJUGATED
     Indication: Bladder disorder
     Dosage: 3 TIMES PER WEEK
  2. PREMARIN [Suspect]
     Active Substance: ESTROGENS, CONJUGATED
     Dosage: 1-2 GRAMS EVERY SINGLE NIGHT
     Route: 067
  3. PREMARIN [Suspect]
     Active Substance: ESTROGENS, CONJUGATED
     Dosage: 1-2 GRAMS OF THE VAGINAL CREAM EVERY NIGHT
     Route: 067

REACTIONS (4)
  - Cystocele [Unknown]
  - Urinary incontinence [Unknown]
  - Product cleaning inadequate [Unknown]
  - Off label use [Unknown]
